FAERS Safety Report 10170627 (Version 2)
Quarter: 2014Q2

REPORT INFORMATION
  Report Type: Report from Study
  Country: FR (occurrence: FR)
  Receive Date: 20140514
  Receipt Date: 20140514
  Transmission Date: 20141212
  Serious: Yes (Hospitalization, Other)
  Sender: FDA-Public Use
  Company Number: FR-ROCHE-1164860

PATIENT
  Age: 75 Year
  Sex: Female

DRUGS (7)
  1. RITUXIMAB [Suspect]
     Indication: RHEUMATOID ARTHRITIS
     Route: 065
     Dates: start: 20090114
  2. RITUXIMAB [Suspect]
     Route: 065
     Dates: start: 20090128, end: 20111104
  3. CORTANCYL [Concomitant]
     Route: 065
  4. PARACETAMOL [Concomitant]
  5. TARDYFERON (FRANCE) [Concomitant]
  6. FOSAVANCE [Concomitant]
  7. FORLAX [Concomitant]

REACTIONS (10)
  - Device related infection [Recovered/Resolved]
  - Abscess soft tissue [Recovered/Resolved]
  - Spinal compression fracture [Recovered/Resolved]
  - Pulmonary embolism [Unknown]
  - Haematoma [Recovered/Resolved]
  - Eschar [Not Recovered/Not Resolved]
  - Cardiac failure [Recovered/Resolved]
  - Renal failure [Recovered/Resolved]
  - Overdose [Unknown]
  - Pubis fracture [Unknown]
